FAERS Safety Report 19896128 (Version 1)
Quarter: 2021Q3

REPORT INFORMATION
  Report Type: Spontaneous
  Country: DE (occurrence: DE)
  Receive Date: 20210929
  Receipt Date: 20210929
  Transmission Date: 20211014
  Serious: Yes (Other)
  Sender: FDA-Public Use
  Company Number: DE-ASTRAZENECA-2021A748659

PATIENT
  Age: 72 Year
  Sex: Male

DRUGS (2)
  1. BRALTUS [Concomitant]
     Active Substance: TIOTROPIUM BROMIDE
  2. SYMBICORT [Suspect]
     Active Substance: BUDESONIDE\FORMOTEROL FUMARATE DIHYDRATE
     Dosage: 160 / 4.5
     Route: 055

REACTIONS (4)
  - Bronchitis chronic [Unknown]
  - Idiopathic pulmonary fibrosis [Unknown]
  - COVID-19 pneumonia [Unknown]
  - Pulmonary congestion [Unknown]
